FAERS Safety Report 24730570 (Version 1)
Quarter: 2024Q4

REPORT INFORMATION
  Report Type: Spontaneous
  Country: US (occurrence: US)
  Receive Date: 20241213
  Receipt Date: 20241213
  Transmission Date: 20250115
  Serious: Yes (Other)
  Sender: MICRO LABS
  Company Number: US-862174955-ML2024-06481

PATIENT
  Age: 75 Year
  Sex: Female

DRUGS (1)
  1. BACLOFEN [Suspect]
     Active Substance: BACLOFEN
     Indication: Product used for unknown indication
     Dosage: TWO DAYS PRIOR, THE PATIENT HAD BEEN PRESCRIBED WITH BACLOFEN 10MG TID AND WAS TAKING IT AS DIRECTED

REACTIONS (3)
  - Encephalopathy [Recovered/Resolved]
  - Neurotoxicity [Recovered/Resolved]
  - Mental status changes [Recovered/Resolved]
